FAERS Safety Report 8033249-X (Version None)
Quarter: 2012Q1

REPORT INFORMATION
  Report Type: 
  Country: None (occurrence: None)
  Receive Date: 20120110
  Receipt Date: 20111227
  Transmission Date: 20120608
  Serious: Yes (Other)
  Sender: FDA-Public Use
  Company Number: JP-ABBOTT-11P-087-0860250-00

PATIENT
  Sex: Female
  Weight: 54 kg

DRUGS (9)
  1. HUMIRA [Suspect]
     Dates: start: 20101208
  2. AZATHIOPRINE [Concomitant]
     Indication: CROHN'S DISEASE
     Route: 048
  3. MESALAMINE [Concomitant]
     Indication: CROHN'S DISEASE
     Route: 048
  4. HUMIRA [Suspect]
     Dates: start: 20101124, end: 20101124
  5. RABEPRAZOLE SODIUM [Concomitant]
     Indication: PRODUCT USED FOR UNKNOWN INDICATION
     Route: 048
  6. LOPERAMIDE HCL [Concomitant]
     Indication: CROHN'S DISEASE
     Route: 048
  7. HUMIRA [Suspect]
     Indication: CROHN'S DISEASE
     Route: 058
     Dates: start: 20101105, end: 20101105
  8. ENTERAL NUTRITION [Concomitant]
     Indication: CROHN'S DISEASE
  9. FOLIC ACID [Concomitant]
     Indication: PRODUCT USED FOR UNKNOWN INDICATION
     Route: 048

REACTIONS (4)
  - PYREXIA [None]
  - INTESTINAL OBSTRUCTION [None]
  - PHARYNGITIS [None]
  - ANAL STENOSIS [None]
